FAERS Safety Report 18334649 (Version 2)
Quarter: 2020Q4

REPORT INFORMATION
  Report Type: Spontaneous
  Country: US (occurrence: US)
  Receive Date: 20201001
  Receipt Date: 20201106
  Transmission Date: 20210113
  Serious: No
  Sender: FDA-Public Use
  Company Number: US-BAYER-2020-212034

PATIENT
  Age: 23 Year
  Sex: Female

DRUGS (1)
  1. KYLEENA [Suspect]
     Active Substance: LEVONORGESTREL
     Indication: CONTRACEPTION
     Dosage: 17.5 ?G PER DAY, CONTIOUSLY
     Route: 015
     Dates: start: 20200908

REACTIONS (3)
  - Contraindicated device used [None]
  - Device expulsion [Not Recovered/Not Resolved]
  - Medical device monitoring error [None]

NARRATIVE: CASE EVENT DATE: 20200915
